FAERS Safety Report 23135612 (Version 2)
Quarter: 2024Q4

REPORT INFORMATION
  Report Type: Spontaneous
  Country: US (occurrence: US)
  Receive Date: 20231101
  Receipt Date: 20241227
  Transmission Date: 20250115
  Serious: No
  Sender: INCYTE
  Company Number: US-INCYTE CORPORATION-2023IN009816

PATIENT

DRUGS (2)
  1. JAKAFI [Suspect]
     Active Substance: RUXOLITINIB
     Dosage: 10 MILLIGRAM, BID
     Route: 048
  2. JAKAFI [Suspect]
     Active Substance: RUXOLITINIB
     Dosage: 10 MILLIGRAM, BID
     Route: 048

REACTIONS (2)
  - Product availability issue [Unknown]
  - Product dose omission issue [Unknown]
